FAERS Safety Report 7758813-4 (Version None)
Quarter: 2011Q3

REPORT INFORMATION
  Report Type: 
  Country: None (occurrence: None)
  Receive Date: 20110919
  Receipt Date: 20110908
  Transmission Date: 20111222
  Serious: Yes (Hospitalization)
  Sender: FDA-Public Use
  Company Number: US-CELGENEUS-163-21880-11091251

PATIENT
  Sex: Female
  Weight: 47.216 kg

DRUGS (5)
  1. DIOVAN [Concomitant]
     Dosage: 160/12.5
     Route: 055
     Dates: start: 20110701
  2. REVLIMID [Suspect]
     Indication: MULTIPLE MYELOMA
     Dosage: 25 MILLIGRAM
     Route: 048
     Dates: start: 20110810
  3. SEROQUEL [Concomitant]
     Dosage: 400 MILLIGRAM
     Route: 048
     Dates: start: 20090101
  4. SYMBICORT [Concomitant]
     Route: 055
     Dates: start: 20090101
  5. ALBUTEROL [Concomitant]
     Route: 055
     Dates: start: 20090101

REACTIONS (2)
  - DRUG DOSE OMISSION [None]
  - HAEMORRHAGE [None]
